FAERS Safety Report 6237882-7 (Version None)
Quarter: 2009Q2

REPORT INFORMATION
  Report Type: 
  Country: None (occurrence: None)
  Receive Date: 20090620
  Receipt Date: 20090608
  Transmission Date: 20091009
  Serious: Yes (Other)
  Sender: FDA-Public Use
  Company Number: PL-MYLANLABS-2009S1010353

PATIENT
  Age: 28 Year
  Sex: Male

DRUGS (4)
  1. CLARITHROMYCIN [Suspect]
     Indication: INFECTION
     Route: 048
  2. CEFTRIAXONE [Concomitant]
     Route: 042
  3. FLUCONAZOLE [Concomitant]
     Route: 048
  4. ACYCLOVIR [Concomitant]
     Route: 048

REACTIONS (1)
  - STEVENS-JOHNSON SYNDROME [None]
